FAERS Safety Report 5968263-9 (Version None)
Quarter: 2008Q4

REPORT INFORMATION
  Report Type: 
  Country: None (occurrence: None)
  Receive Date: 20081119
  Receipt Date: 20080827
  Transmission Date: 20090506
  Serious: No
  Sender: FDA-Public Use
  Company Number: WAES 0808USA04951

PATIENT
  Sex: Male

DRUGS (2)
  1. JANUVIA [Suspect]
     Dosage: 100 MG/PO
     Route: 048
  2. BYETTA [Suspect]

REACTIONS (2)
  - OFF LABEL USE [None]
  - RASH GENERALISED [None]
